FAERS Safety Report 4810011-X (Version None)
Quarter: 2005Q4

REPORT INFORMATION
  Report Type: 
  Country: None (occurrence: None)
  Receive Date: 20051024
  Receipt Date: 20051011
  Transmission Date: 20060501
  Serious: Yes (Hospitalization)
  Sender: FDA-Public Use
  Company Number: 032-45

PATIENT
  Age: 68 Year
  Sex: Male

DRUGS (4)
  1. TEVETEN [Suspect]
     Indication: HYPERTENSION
     Dosage: 600 MG QD PO
     Route: 048
     Dates: start: 20040427
  2. ACETYLSALICYLATE CALCIUM [Concomitant]
  3. ISOSORBIDE MONONITRATE [Concomitant]
  4. BISOPROLOL [Concomitant]

REACTIONS (1)
  - CORONARY ANGIOPLASTY [None]
